FAERS Safety Report 6275110-7 (Version None)
Quarter: 2009Q3

REPORT INFORMATION
  Report Type: 
  Country: None (occurrence: None)
  Receive Date: 20090721
  Receipt Date: 20090715
  Transmission Date: 20100115
  Serious: Yes (Death, Hospitalization, Other)
  Sender: FDA-Public Use
  Company Number: PHEH2009US02120

PATIENT
  Sex: Female
  Weight: 65.5 kg

DRUGS (10)
  1. TASIGNA [Suspect]
     Indication: CHRONIC MYELOID LEUKAEMIA
     Dosage: 400 MG, BID
     Route: 048
     Dates: start: 20081031, end: 20081230
  2. ETHACRYNIC ACID [Concomitant]
  3. GLIPIZIDE [Concomitant]
  4. ALBUTEROL [Concomitant]
  5. NORVASC [Concomitant]
  6. ATIVAN [Concomitant]
  7. LISINOPRIL [Concomitant]
  8. ZYRTEC [Concomitant]
  9. METOPROLOL TARTRATE [Concomitant]
  10. HYDRALAZINE HCL [Concomitant]

REACTIONS (9)
  - APHASIA [None]
  - ASTHENIA [None]
  - CEREBROVASCULAR ACCIDENT [None]
  - CONVULSION [None]
  - FATIGUE [None]
  - HEADACHE [None]
  - MENTAL STATUS CHANGES [None]
  - PLATELET COUNT DECREASED [None]
  - SUBDURAL HAEMATOMA [None]
